FAERS Safety Report 11228634 (Version 1)
Quarter: 2015Q2

REPORT INFORMATION
  Report Type: Spontaneous
  Country: NZ (occurrence: None)
  Receive Date: 20150626
  Receipt Date: 20150626
  Transmission Date: 20150821
  Serious: Yes (Hospitalization)
  Sender: FDA-Public Use
  Company Number: ABR_02255_2015

PATIENT
  Age: 76 Year
  Sex: Female

DRUGS (9)
  1. SPIRONOLACTONE (SPIRONOLACTONE) [Suspect]
     Active Substance: SPIRONOLACTONE
     Indication: PRODUCT USED FOR UNKNOWN INDICATION
     Dosage: DF
  2. PROPRANOLOL [Concomitant]
     Active Substance: PROPRANOLOL\PROPRANOLOL HYDROCHLORIDE
  3. POTASSIUM [Concomitant]
     Active Substance: POTASSIUM
  4. THYROXINE [Concomitant]
     Active Substance: LEVOTHYROXINE
  5. SOTALOL (SOTALOL) [Suspect]
     Active Substance: SOTALOL
     Indication: PRODUCT USED FOR UNKNOWN INDICATION
     Dosage: DF?
  6. HEPARIN [Suspect]
     Active Substance: HEPARIN SODIUM
     Indication: PRODUCT USED FOR UNKNOWN INDICATION
     Dosage: DF
  7. SALBUTAMOL (SALBUTAMOL) [Suspect]
     Active Substance: ALBUTEROL
     Indication: PRODUCT USED FOR UNKNOWN INDICATION
     Dosage: DF?
  8. PREDNISONE (PREDNISONE) [Suspect]
     Active Substance: PREDNISONE
     Indication: PRODUCT USED FOR UNKNOWN INDICATION
  9. FUROSEMIDE. [Concomitant]
     Active Substance: FUROSEMIDE

REACTIONS (14)
  - Orthostatic hypotension [None]
  - Affect lability [None]
  - Syncope [None]
  - Gastric ulcer haemorrhage [None]
  - Malaise [None]
  - Muscular weakness [None]
  - Lower respiratory tract infection [None]
  - Arrhythmia [None]
  - Tearfulness [None]
  - Productive cough [None]
  - Myopathy [None]
  - Fatigue [None]
  - Pulmonary embolism [None]
  - Nerve compression [None]
